FAERS Safety Report 12315691 (Version 1)
Quarter: 2016Q2

REPORT INFORMATION
  Report Type: Spontaneous
  Country: DE (occurrence: DE)
  Receive Date: 20160428
  Receipt Date: 20160428
  Transmission Date: 20160815
  Serious: Yes (Other)
  Sender: FDA-Public Use
  Company Number: DE-B.I. PHARMACEUTICALS,INC./RIDGEFIELD-2016-BI-24426BY

PATIENT
  Age: 74 Year
  Sex: Male
  Weight: 80 kg

DRUGS (8)
  1. APIXABAN [Concomitant]
     Active Substance: APIXABAN
     Indication: PRODUCT USED FOR UNKNOWN INDICATION
     Route: 065
  2. BUDESONID [Suspect]
     Active Substance: BUDESONIDE
     Indication: GASTROINTESTINAL INFLAMMATION
     Dosage: 9 MG
     Route: 065
  3. BUDESONID [Suspect]
     Active Substance: BUDESONIDE
     Dosage: 1 ANZ
     Route: 065
  4. TELMISARTAN. [Suspect]
     Active Substance: TELMISARTAN
     Indication: HYPERTENSION
     Dosage: 60 MG
     Route: 065
  5. TELMISARTAN. [Concomitant]
     Active Substance: TELMISARTAN
     Indication: PRODUCT USED FOR UNKNOWN INDICATION
     Route: 065
  6. BUDESONID [Suspect]
     Active Substance: BUDESONIDE
     Dosage: 2 ANZ
     Route: 065
  7. BUDESONID [Suspect]
     Active Substance: BUDESONIDE
     Dosage: 9 MG
     Route: 065
  8. CONCOR [Concomitant]
     Active Substance: BISOPROLOL FUMARATE
     Indication: HYPERTENSION
     Dosage: 10 MG
     Route: 065
     Dates: start: 201511

REACTIONS (3)
  - Hypertension [Unknown]
  - Gastrointestinal inflammation [Unknown]
  - Drug interaction [Unknown]
